FAERS Safety Report 9846423 (Version 2)
Quarter: 2014Q1

REPORT INFORMATION
  Report Type: Spontaneous
  Country: US (occurrence: US)
  Receive Date: 20140127
  Receipt Date: 20140210
  Transmission Date: 20141002
  Serious: Yes (Hospitalization, Other)
  Sender: FDA-Public Use
  Company Number: US-PFIZER INC-2014020926

PATIENT
  Age: 80 Year
  Sex: Male
  Weight: 69.39 kg

DRUGS (2)
  1. DETROL LA [Suspect]
     Dosage: UNK
  2. COLESTIPOL [Concomitant]
     Indication: BLOOD CHOLESTEROL ABNORMAL
     Dosage: UNKNOWN DOSE, DAILY

REACTIONS (5)
  - Lung infection [Unknown]
  - Herpes zoster [Unknown]
  - Pain [Unknown]
  - Skin disorder [Unknown]
  - Constipation [Unknown]
